FAERS Safety Report 4693067-7 (Version None)
Quarter: 2005Q2

REPORT INFORMATION
  Report Type: 
  Country: None (occurrence: None)
  Receive Date: 20050613
  Receipt Date: 20050601
  Transmission Date: 20051028
  Serious: Yes (Hospitalization)
  Sender: FDA-Public Use
  Company Number: THYM-10565

PATIENT
  Age: 38 Year
  Sex: Male
  Weight: 78.7 kg

DRUGS (4)
  1. THYMOGLOBULIN [Suspect]
     Indication: RENAL TRANSPLANT
     Dosage: 90 MG QD IV
     Route: 042
     Dates: start: 20020117, end: 20020120
  2. PROGRAF [Concomitant]
  3. RAPAMUNE [Concomitant]
  4. PREDNISONE TAB [Concomitant]

REACTIONS (3)
  - FLUID RETENTION [None]
  - HYPERKALAEMIA [None]
  - KIDNEY TRANSPLANT REJECTION [None]
